FAERS Safety Report 24173939 (Version 1)
Quarter: 2024Q3

REPORT INFORMATION
  Report Type: Spontaneous
  Country: CN (occurrence: CN)
  Receive Date: 20240805
  Receipt Date: 20240805
  Transmission Date: 20241016
  Serious: Yes (Hospitalization)
  Sender: MERCK
  Company Number: CN-009507513-2407CHN015707

PATIENT
  Age: 60 Year
  Sex: Female
  Weight: 68 kg

DRUGS (1)
  1. KEYTRUDA [Suspect]
     Active Substance: PEMBROLIZUMAB
     Indication: Rectal cancer
     Dosage: 200 MG, ONCE
     Route: 041
     Dates: start: 20240625, end: 20240625

REACTIONS (2)
  - White blood cell count abnormal [Recovering/Resolving]
  - Neutrophil count abnormal [Unknown]

NARRATIVE: CASE EVENT DATE: 20240717
